FAERS Safety Report 5120782-3 (Version None)
Quarter: 2006Q4

REPORT INFORMATION
  Report Type: 
  Country: None (occurrence: None)
  Receive Date: 20061003
  Receipt Date: 20061003
  Transmission Date: 20070319
  Serious: Yes (Other)
  Sender: FDA-Public Use
  Company Number: None

PATIENT
  Sex: Female
  Weight: 48.0813 kg

DRUGS (7)
  1. HUMIRA [Suspect]
     Indication: RHEUMATOID ARTHRITIS
     Dosage: 40 MG 1 EVERY 2 WEEKS SC
     Route: 058
     Dates: start: 20060111
  2. METHOTREXATE [Concomitant]
  3. TYLENOL W/ CODEINE NO. 3 [Concomitant]
  4. FOLIC ACID [Concomitant]
  5. MORPHINE [Concomitant]
  6. NABUMETONE [Concomitant]
  7. ACTONEL [Concomitant]

REACTIONS (2)
  - DRUG ERUPTION [None]
  - MOUTH ULCERATION [None]
